FAERS Safety Report 7083634-8 (Version None)
Quarter: 2010Q4

REPORT INFORMATION
  Report Type: 
  Country: None (occurrence: None)
  Receive Date: 20101104
  Receipt Date: 20060809
  Transmission Date: 20110411
  Serious: Yes (Life-Threatening, Hospitalization)
  Sender: FDA-Public Use
  Company Number: MX-ROCHE-738032

PATIENT
  Sex: Male
  Weight: 57 kg

DRUGS (3)
  1. MYCOPHENOLATE MOFETIL [Suspect]
     Indication: RENAL TRANSPLANT
     Route: 048
     Dates: start: 20040303
  2. TACROLIMUS [Concomitant]
     Dates: start: 20050304
  3. PREDNISONE [Concomitant]
     Dates: start: 20040420

REACTIONS (1)
  - TRANSPLANT REJECTION [None]
